FAERS Safety Report 11965774 (Version 2)
Quarter: 2016Q2

REPORT INFORMATION
  Report Type: Spontaneous
  Country: BR (occurrence: BR)
  Receive Date: 20160127
  Receipt Date: 20160401
  Transmission Date: 20160815
  Serious: Yes (Other)
  Sender: FDA-Public Use
  Company Number: BR-PFIZER INC-2015363941

PATIENT
  Age: 74 Year
  Sex: Female
  Weight: 60 kg

DRUGS (8)
  1. SUTENT [Suspect]
     Active Substance: SUNITINIB MALATE
     Dosage: 50 MG, CYCLE 2 PER 1
     Route: 048
     Dates: start: 201509
  2. NEMODINE /00495202/ [Concomitant]
     Indication: HYPERTENSION
     Dosage: 1 TABLET PER DAY (IN THE MORNING)
  3. SUTENT [Suspect]
     Active Substance: SUNITINIB MALATE
     Indication: GASTROINTESTINAL STROMAL TUMOUR
     Dosage: 50 MG, CYCLIC (4 PER 2)
     Route: 048
     Dates: start: 20150923
  4. SUTENT [Suspect]
     Active Substance: SUNITINIB MALATE
     Dosage: 50 MG, CYCLIC ( 2 PER 1)
     Route: 048
  5. AMLODIPINE [Concomitant]
     Active Substance: AMLODIPINE BESYLATE
     Dosage: 5 MG, 2X/DAY
  6. LOSARTAN POTASSIUM AND HYDROCHLOROTHIAZIDE [Concomitant]
     Active Substance: HYDROCHLOROTHIAZIDE\LOSARTAN POTASSIUM
     Indication: HYPERTENSION
     Dosage: 100/25 MG
  7. LOSARTAN POTASSIUM. [Concomitant]
     Active Substance: LOSARTAN POTASSIUM
     Dosage: 1 TABLET (STRENGTH: 100) DAILY (IN THE EVENING)
  8. ATENSINA [Concomitant]
     Active Substance: CLONIDINE
     Indication: HYPERTENSION
     Dosage: 200 MG, UNK

REACTIONS (20)
  - Eye swelling [Unknown]
  - Rash macular [Not Recovered/Not Resolved]
  - Peripheral swelling [Not Recovered/Not Resolved]
  - Tongue discolouration [Not Recovered/Not Resolved]
  - Oral pain [Not Recovered/Not Resolved]
  - Dry skin [Not Recovered/Not Resolved]
  - Blister infected [Unknown]
  - Weight increased [Unknown]
  - Blister [Unknown]
  - Dry mouth [Not Recovered/Not Resolved]
  - Aphthous ulcer [Not Recovered/Not Resolved]
  - Eating disorder [Not Recovered/Not Resolved]
  - Diarrhoea [Not Recovered/Not Resolved]
  - Skin exfoliation [Not Recovered/Not Resolved]
  - Conjunctivitis [Unknown]
  - Cough [Unknown]
  - Anaemia [Unknown]
  - Dyspepsia [Unknown]
  - Scab [Not Recovered/Not Resolved]
  - Wound abscess [Not Recovered/Not Resolved]

NARRATIVE: CASE EVENT DATE: 2015
